FAERS Safety Report 6137156-9 (Version None)
Quarter: 2009Q1

REPORT INFORMATION
  Report Type: 
  Country: None (occurrence: None)
  Receive Date: 20090330
  Receipt Date: 20090318
  Transmission Date: 20090719
  Serious: Yes (Other)
  Sender: FDA-Public Use
  Company Number: US-PFIZER INC-2009185960

PATIENT
  Sex: Male
  Weight: 72.574 kg

DRUGS (3)
  1. CHANTIX [Suspect]
     Indication: SMOKING CESSATION THERAPY
     Dosage: UNKNOWN
     Dates: start: 20090316
  2. VITAMINS [Concomitant]
     Dosage: UNKNOWN
  3. DRUG, UNSPECIFIED [Concomitant]
     Dosage: UNKNOWN

REACTIONS (1)
  - LIP SWELLING [None]
